FAERS Safety Report 24215073 (Version 2)
Quarter: 2024Q3

REPORT INFORMATION
  Report Type: Spontaneous
  Country: JP (occurrence: JP)
  Receive Date: 20240816
  Receipt Date: 20240826
  Transmission Date: 20241017
  Serious: Yes (Hospitalization, Other)
  Sender: CHATTEM
  Company Number: JP-OPELLA-2024OHG026708

PATIENT
  Age: 43 Year
  Sex: Male

DRUGS (2)
  1. XYZAL ALLERGY 24HR [Suspect]
     Active Substance: LEVOCETIRIZINE DIHYDROCHLORIDE
     Indication: Product used for unknown indication
     Route: 065
  2. DIETARY SUPPLEMENT [Suspect]
     Active Substance: DIETARY SUPPLEMENT
     Indication: Product used for unknown indication
     Route: 065

REACTIONS (11)
  - Fanconi syndrome acquired [Recovering/Resolving]
  - Acute kidney injury [Recovering/Resolving]
  - Renal impairment [Recovering/Resolving]
  - Hypokalaemia [Recovering/Resolving]
  - Renal tubular disorder [Recovering/Resolving]
  - Aminoaciduria [Recovering/Resolving]
  - Kidney enlargement [Recovering/Resolving]
  - Abdominal discomfort [Recovering/Resolving]
  - Hypophosphataemia [Recovering/Resolving]
  - Hypouricaemia [Recovering/Resolving]
  - Nausea [Recovering/Resolving]
